FAERS Safety Report 26044395 (Version 1)
Quarter: 2025Q4

REPORT INFORMATION
  Report Type: Spontaneous
  Country: US (occurrence: US)
  Receive Date: 20251114
  Receipt Date: 20251114
  Transmission Date: 20260118
  Serious: Yes (Hospitalization, Other)
  Sender: SPECGX
  Company Number: US-SPECGX-T202501838

PATIENT
  Age: 7 Week
  Sex: Female
  Weight: 4 kg

DRUGS (1)
  1. METHADONE [Suspect]
     Active Substance: METHADONE HYDROCHLORIDE
     Indication: Product used for unknown indication
     Dosage: UNK
     Route: 065

REACTIONS (7)
  - Cyanosis [Unknown]
  - Lethargy [Unknown]
  - Toxicity to various agents [Unknown]
  - Dyspnoea [Unknown]
  - Apnoea [Unknown]
  - Miosis [Unknown]
  - Accidental exposure to product by child [Unknown]
